FAERS Safety Report 8993156 (Version 2)
Quarter: 2013Q1

REPORT INFORMATION
  Report Type: Spontaneous
  Country: IL (occurrence: IL)
  Receive Date: 20130102
  Receipt Date: 20130104
  Transmission Date: 20140127
  Serious: Yes (Hospitalization, Other)
  Sender: FDA-Public Use
  Company Number: IL-ROCHE-1173654

PATIENT
  Sex: Female

DRUGS (11)
  1. XOLAIR [Suspect]
     Indication: ASTHMA
     Route: 065
     Dates: start: 2011, end: 201105
  2. XOLAIR [Suspect]
     Route: 065
     Dates: start: 201207
  3. XOLAIR [Suspect]
     Dosage: THREE DOSES
     Route: 065
     Dates: start: 201208
  4. XOLAIR [Suspect]
     Route: 065
     Dates: start: 201209
  5. XOLAIR [Suspect]
     Route: 065
     Dates: start: 201210
  6. XOLAIR [Suspect]
     Route: 065
     Dates: start: 20121113
  7. ELATROLET [Concomitant]
     Indication: PAIN
     Route: 065
  8. ELATROLET [Concomitant]
     Indication: SENSATION OF PRESSURE
  9. GLUCOMIN [Concomitant]
     Indication: DIABETES MELLITUS
  10. VENTOLIN [Concomitant]
  11. AEROVENT [Concomitant]

REACTIONS (8)
  - Asthma [Unknown]
  - Syncope [Unknown]
  - Blindness unilateral [Unknown]
  - Blindness transient [Unknown]
  - Head discomfort [Unknown]
  - Maternal exposure during pregnancy [Unknown]
  - Normal newborn [Unknown]
  - Vision blurred [Unknown]
